FAERS Safety Report 18319811 (Version 3)
Quarter: 2021Q3

REPORT INFORMATION
  Report Type: Spontaneous
  Country: US (occurrence: US)
  Receive Date: 20200928
  Receipt Date: 20210901
  Transmission Date: 20211014
  Serious: No
  Sender: FDA-Public Use
  Company Number: US-PFIZER INC-2020359652

PATIENT
  Age: 13 Year
  Sex: Female
  Weight: 57.15 kg

DRUGS (5)
  1. GENOTROPIN [Suspect]
     Active Substance: SOMATROPIN
     Indication: AUTOIMMUNE DISORDER
     Dosage: 2.2 MG, 1X/DAY (INJECTED NIGHTLY)
  2. GENOTROPIN [Suspect]
     Active Substance: SOMATROPIN
     Indication: BLOOD GROWTH HORMONE ABNORMAL
  3. HYDROCORTISONE. [Concomitant]
     Active Substance: HYDROCORTISONE
     Indication: IMMUNE SYSTEM DISORDER
     Dosage: UNK, 2X/DAY (UNKNOWN DOSE. TAKES IT TWICE A DAY)
  4. SYNTHROID [Concomitant]
     Active Substance: LEVOTHYROXINE SODIUM
     Indication: THYROID DISORDER
     Dosage: UNK, 1X/DAY(UNKNOWN. ONCE A DAY)
  5. DDAVP [Concomitant]
     Active Substance: DESMOPRESSIN ACETATE
     Indication: URINARY INCONTINENCE
     Dosage: 0.25 DF, 2X/DAY (1/4 OF TABLET TWICE DAILY)
     Route: 048

REACTIONS (3)
  - Device breakage [Unknown]
  - Device use error [Unknown]
  - Drug dose omission by device [Unknown]

NARRATIVE: CASE EVENT DATE: 20200913
